FAERS Safety Report 14119354 (Version 3)
Quarter: 2017Q4

REPORT INFORMATION
  Report Type: Spontaneous
  Country: US (occurrence: US)
  Receive Date: 20171024
  Receipt Date: 20171116
  Transmission Date: 20180321
  Serious: No
  Sender: FDA-Public Use
  Company Number: US-PFIZER INC-2017453899

PATIENT
  Age: 59 Year
  Sex: Female

DRUGS (2)
  1. IBRANCE [Suspect]
     Active Substance: PALBOCICLIB
     Indication: BREAST CANCER METASTATIC
     Dosage: 125 MG, CYCLIC(7 DAYS OFF)
     Dates: start: 201602
  2. FASLODEX [Concomitant]
     Active Substance: FULVESTRANT
     Indication: BREAST CANCER METASTATIC
     Dosage: UNK

REACTIONS (8)
  - Fatigue [Unknown]
  - White blood cell count decreased [Unknown]
  - Hypersomnia [Unknown]
  - Oesophageal disorder [Recovered/Resolved]
  - Asthenia [Unknown]
  - Malaise [Unknown]
  - Nasopharyngitis [Unknown]
  - Stomatitis [Recovered/Resolved]
